FAERS Safety Report 8069189-X (Version None)
Quarter: 2012Q1

REPORT INFORMATION
  Report Type: 
  Country: None (occurrence: None)
  Receive Date: 20120125
  Receipt Date: 20120123
  Transmission Date: 20120608
  Serious: Yes (Death)
  Sender: FDA-Public Use
  Company Number: DE-JNJFOC-20120109064

PATIENT
  Sex: Female
  Weight: 70 kg

DRUGS (4)
  1. ACETYLSALICYLSAEURE [Suspect]
     Indication: CORONARY ARTERY DISEASE
     Route: 048
  2. HEPARIN [Suspect]
     Indication: THROMBOSIS
     Route: 042
     Dates: start: 20110609
  3. CLOPIDOGREL [Suspect]
     Indication: THROMBOSIS
     Route: 048
     Dates: start: 20110609
  4. REOPRO [Suspect]
     Indication: THROMBOSIS
     Route: 042
     Dates: start: 20110609

REACTIONS (2)
  - SHOCK HAEMORRHAGIC [None]
  - RETROPERITONEAL HAEMORRHAGE [None]
